FAERS Safety Report 8512346-6 (Version None)
Quarter: 2012Q3

REPORT INFORMATION
  Report Type: 
  Country: None (occurrence: None)
  Receive Date: 20120716
  Receipt Date: 20120711
  Transmission Date: 20120928
  Serious: Yes (Death, Hospitalization)
  Sender: FDA-Public Use
  Company Number: PHHY2012BR060193

PATIENT
  Sex: Female
  Weight: 60 kg

DRUGS (8)
  1. EXELON [Suspect]
     Indication: DEMENTIA ALZHEIMER'S TYPE
     Dosage: 1 DF (1.5MG), BID
     Route: 048
  2. EXELON [Suspect]
     Dosage: 1 DF (3MG), BID
     Route: 048
  3. LEVOMEPROMAZINE [Concomitant]
     Indication: SLEEP DISORDER
     Dosage: 1 DF, QD
     Route: 048
  4. PROPRANOLOL [Concomitant]
     Indication: HYPERTENSION
     Dosage: 1 TABLET A DAY
     Route: 048
  5. HYDROCHLOROTHIAZIDE [Concomitant]
     Indication: HYPERTENSION
     Dosage: 1 TABLET A DAY
     Route: 048
  6. CLONAZEPAM [Concomitant]
     Indication: SEDATION
     Dosage: 1 TABLET A DAY
     Route: 048
  7. ORAL ANTIDIABETICS [Concomitant]
     Indication: DIABETES MELLITUS
     Route: 048
  8. INSULIN [Concomitant]
     Dosage: 10 IU, UNK

REACTIONS (7)
  - PAIN IN EXTREMITY [None]
  - VOMITING [None]
  - DEHYDRATION [None]
  - CYSTITIS [None]
  - MUTISM [None]
  - DEATH [None]
  - FOOD AVERSION [None]
